FAERS Safety Report 4492665-3 (Version None)
Quarter: 2004Q4

REPORT INFORMATION
  Report Type: 
  Country: None (occurrence: None)
  Receive Date: 20041029
  Receipt Date: 20040619
  Transmission Date: 20050328
  Serious: Yes (Other)
  Sender: FDA-Public Use
  Company Number: 2004240714AU

PATIENT
  Age: 33 Year
  Sex: Female

DRUGS (1)
  1. SYNAREL [Suspect]
     Indication: INFERTILITY
     Dosage: 1 SPRAY, BID
     Dates: start: 20040618

REACTIONS (4)
  - FEAR [None]
  - INSOMNIA [None]
  - MOTOR DYSFUNCTION [None]
  - PSYCHOTIC DISORDER [None]
